FAERS Safety Report 9351701 (Version 1)
Quarter: 2013Q2

REPORT INFORMATION
  Report Type: Spontaneous
  Country: US (occurrence: US)
  Receive Date: 20130617
  Receipt Date: 20130617
  Transmission Date: 20140414
  Serious: No
  Sender: FDA-Public Use
  Company Number: US-UPSHER-SMITH LABORATORIES, INC.-12001680

PATIENT
  Age: 55 Year
  Sex: Male

DRUGS (11)
  1. PACERONE (USL) [Suspect]
     Indication: PRODUCT USED FOR UNKNOWN INDICATION
     Dosage: 400 MG, TID
     Route: 048
     Dates: start: 20120725
  2. OXYCONTIN [Concomitant]
     Dosage: UNK
  3. BACTRIM DS [Concomitant]
     Indication: CELLULITIS
     Dosage: UNK
  4. HYDROCHLOROTHIAZIDE [Concomitant]
     Dosage: UNK
  5. LISINOPRIL [Concomitant]
     Dosage: UNK
  6. COUMADIN                           /00014802/ [Concomitant]
     Dosage: UNK
  7. NORVASC                            /00972401/ [Concomitant]
     Dosage: UNK
  8. HYTRIN [Concomitant]
     Dosage: UNK
  9. DIGOXIN [Concomitant]
     Dosage: UNK
  10. POTASSIUM [Concomitant]
     Dosage: UNK
  11. CELEBREX [Concomitant]
     Dosage: UNK

REACTIONS (1)
  - Dysphonia [Not Recovered/Not Resolved]
